FAERS Safety Report 25315350 (Version 2)
Quarter: 2025Q2

REPORT INFORMATION
  Report Type: Report from Study
  Country: US (occurrence: US)
  Receive Date: 20250514
  Receipt Date: 20250530
  Transmission Date: 20250717
  Serious: Yes (Other)
  Sender: MALLINCKRODT
  Company Number: US-MALLINCKRODT-MNK202502028

PATIENT
  Age: 78 Year
  Sex: Female

DRUGS (9)
  1. CORTICOTROPIN [Suspect]
     Active Substance: CORTICOTROPIN
     Indication: Rheumatoid arthritis
     Route: 058
     Dates: start: 20250325, end: 202503
  2. CORTICOTROPIN [Suspect]
     Active Substance: CORTICOTROPIN
     Indication: Rheumatoid arthritis
     Dosage: 80 UNITS
     Route: 058
     Dates: start: 20250328, end: 20250331
  3. STOOL SOFTENER (DOCUSATE) [Suspect]
     Active Substance: DOCUSATE
     Indication: Abnormal faeces
  4. HYDROXYCHLOROQUINE [Concomitant]
     Active Substance: HYDROXYCHLOROQUINE
  5. GABAPENTIN [Concomitant]
     Active Substance: GABAPENTIN
  6. ACTEMRA [Concomitant]
     Active Substance: TOCILIZUMAB
     Route: 042
  7. IRON [Concomitant]
     Active Substance: IRON
  8. PREDNISONE [Concomitant]
     Active Substance: PREDNISONE
  9. PREDNISONE [Concomitant]
     Active Substance: PREDNISONE

REACTIONS (10)
  - Shoulder operation [Unknown]
  - Gastrointestinal disorder [Recovering/Resolving]
  - Abdominal discomfort [Recovering/Resolving]
  - Post procedural infection [Unknown]
  - Staphylococcal infection [Unknown]
  - Diarrhoea [Recovering/Resolving]
  - Nausea [Unknown]
  - Faeces soft [Unknown]
  - Asthenia [Unknown]
  - Fatigue [Unknown]

NARRATIVE: CASE EVENT DATE: 20250101
